FAERS Safety Report 20574234 (Version 2)
Quarter: 2022Q1

REPORT INFORMATION
  Report Type: Report from Study
  Country: US (occurrence: US)
  Receive Date: 20220309
  Receipt Date: 20220328
  Transmission Date: 20220423
  Serious: Yes (Hospitalization)
  Sender: FDA-Public Use
  Company Number: US-BAYER-2022A031050

PATIENT
  Age: 65 Year
  Sex: Male

DRUGS (3)
  1. STIVARGA [Suspect]
     Active Substance: REGORAFENIB
     Indication: Rectal cancer
     Dosage: 40 MG, QD  FOR 11 WEEKS WITH 2 WEEKS OFF
     Route: 048
     Dates: start: 20220223, end: 20220227
  2. STIVARGA [Suspect]
     Active Substance: REGORAFENIB
     Indication: Colorectal cancer
     Dosage: 160 MG, QD FOR 21 DAYS ON 7 DAYS OFF
     Route: 048
     Dates: start: 20220228, end: 20220319
  3. LONSURF [Suspect]
     Active Substance: TIPIRACIL HYDROCHLORIDE\TRIFLURIDINE
     Indication: Colorectal cancer
     Dosage: 20MG/8.19MG.TAKE 4 TABLETS EVERY 12 HOURS ON DAYS 1-5 AND DAYS 8-12 OF EVERY 28 DAY CYCLE.
     Route: 048

REACTIONS (8)
  - Hospitalisation [None]
  - Pruritus [None]
  - Fatigue [Not Recovered/Not Resolved]
  - Decreased appetite [Not Recovered/Not Resolved]
  - Product communication issue [None]
  - Blood pressure increased [None]
  - Treatment noncompliance [Unknown]
  - Off label use [None]

NARRATIVE: CASE EVENT DATE: 20220223
